FAERS Safety Report 12703222 (Version 1)
Quarter: 2016Q3

REPORT INFORMATION
  Report Type: Spontaneous
  Country: JP (occurrence: JP)
  Receive Date: 20160831
  Receipt Date: 20160831
  Transmission Date: 20161109
  Serious: Yes (Other)
  Sender: FDA-Public Use
  Company Number: JP-SA-2016SA146919

PATIENT
  Age: 73 Year
  Sex: Male

DRUGS (4)
  1. ONETAXOTERE [Suspect]
     Active Substance: DOCETAXEL
     Indication: MALIGNANT MELANOMA
     Route: 065
     Dates: start: 2014
  2. CISPLATIN. [Suspect]
     Active Substance: CISPLATIN
     Indication: MALIGNANT MELANOMA
     Route: 065
     Dates: start: 2014
  3. FLUOROURACIL. [Suspect]
     Active Substance: FLUOROURACIL
     Indication: MALIGNANT MELANOMA
     Route: 065
     Dates: start: 2014
  4. DACARBAZINE. [Suspect]
     Active Substance: DACARBAZINE
     Indication: MALIGNANT MELANOMA
     Route: 065
     Dates: start: 2014

REACTIONS (4)
  - Malignant melanoma [Not Recovered/Not Resolved]
  - Metastases to liver [Not Recovered/Not Resolved]
  - Metastases to lung [Recovered/Resolved]
  - General physical health deterioration [Unknown]

NARRATIVE: CASE EVENT DATE: 2014
